FAERS Safety Report 5597350-2 (Version None)
Quarter: 2008Q1

REPORT INFORMATION
  Report Type: 
  Country: None (occurrence: None)
  Receive Date: 20080121
  Receipt Date: 20080115
  Transmission Date: 20080703
  Serious: Yes (Death, Hospitalization)
  Sender: FDA-Public Use
  Company Number: PHEH2007US10346

PATIENT
  Age: 80 Year
  Sex: Male
  Weight: 60.317 kg

DRUGS (13)
  1. EXJADE [Suspect]
     Indication: IRON OVERLOAD
     Dosage: 500MG, BID
     Route: 048
     Dates: start: 20070522, end: 20070601
  2. EXJADE [Suspect]
     Dosage: 500 MG, QD
     Route: 048
     Dates: start: 20070101, end: 20070717
  3. ASPIRIN [Concomitant]
     Dosage: 81 MG, QD
     Route: 048
     Dates: end: 20070826
  4. COREG [Concomitant]
     Dosage: 6.25 MG, BID
     Route: 048
     Dates: start: 20070801
  5. COREG [Concomitant]
     Dosage: 12.5 MG, BID
     Route: 048
  6. FOLIC ACID [Concomitant]
     Dosage: 1 MG, QD
     Route: 048
  7. LASIX [Concomitant]
     Dosage: 40 MG, QD
     Route: 048
  8. NEXIUM [Concomitant]
     Dosage: 40 MG, QD
     Route: 048
  9. KLOR-CON [Concomitant]
     Dosage: 10 MEQ, QD
     Route: 048
  10. LACTOBACILLUS ACIDOPHILUS [Concomitant]
     Dosage: 1 DF, QD
     Route: 048
     Dates: start: 20070829
  11. TRAVATAN [Concomitant]
     Dosage: 1 DRP, QHS
  12. PROCRIT [Concomitant]
     Dates: start: 20070826
  13. PROCRIT [Concomitant]
     Dosage: 60000 U, QW
     Route: 058
     Dates: start: 20070717

REACTIONS (27)
  - ACUTE PRERENAL FAILURE [None]
  - ANAEMIA [None]
  - ASTHENIA [None]
  - ATELECTASIS [None]
  - BLOOD CALCIUM DECREASED [None]
  - BLOOD CREATININE INCREASED [None]
  - BLOOD SODIUM DECREASED [None]
  - CLOSTRIDIUM DIFFICILE COLITIS [None]
  - COMPUTERISED TOMOGRAM ABNORMAL [None]
  - CONFUSIONAL STATE [None]
  - DEATH [None]
  - DEHYDRATION [None]
  - DISORIENTATION [None]
  - DYSPNOEA EXERTIONAL [None]
  - FAECAL INCONTINENCE [None]
  - GASTROINTESTINAL HAEMORRHAGE [None]
  - HAEMATOCHEZIA [None]
  - HAEMOGLOBIN DECREASED [None]
  - HYPOGLYCAEMIA [None]
  - HYPOKALAEMIA [None]
  - HYPOTENSION [None]
  - LETHARGY [None]
  - MELAENA [None]
  - PNEUMONIA [None]
  - PSEUDOMEMBRANOUS COLITIS [None]
  - PYREXIA [None]
  - RENAL FAILURE ACUTE [None]
